FAERS Safety Report 8149986-2 (Version None)
Quarter: 2012Q1

REPORT INFORMATION
  Report Type: 
  Country: None (occurrence: None)
  Receive Date: 20120218
  Receipt Date: 20111222
  Transmission Date: 20120608
  Serious: No
  Sender: FDA-Public Use
  Company Number: US-ALLERGAN-1116966US

PATIENT
  Sex: Female

DRUGS (4)
  1. LEVAQUIN [Concomitant]
  2. AMOXICILLIN [Concomitant]
  3. ZITHROMAX [Concomitant]
  4. BOTULINUM TOXIN TYPE A [Suspect]
     Indication: SKIN WRINKLING
     Dosage: UNK
     Route: 030
     Dates: start: 20111216, end: 20111216

REACTIONS (6)
  - INFLUENZA LIKE ILLNESS [None]
  - PYREXIA [None]
  - RHINORRHOEA [None]
  - CONTUSION [None]
  - NECK PAIN [None]
  - EYELID PTOSIS [None]
